FAERS Safety Report 6016843-7 (Version None)
Quarter: 2008Q4

REPORT INFORMATION
  Report Type: 
  Country: None (occurrence: None)
  Receive Date: 20081219
  Receipt Date: 20081204
  Transmission Date: 20090506
  Serious: Yes (Hospitalization)
  Sender: FDA-Public Use
  Company Number: GB-DEXPHARM-20081421

PATIENT
  Age: 52 Year
  Sex: Female

DRUGS (4)
  1. OMEPRAZOLE [Suspect]
     Dosage: 20 MG MILLIGRAMS(S)
     Route: 048
     Dates: start: 20081125, end: 20081125
  2. DIHYDROCODEINE BITARTRATE INJ [Concomitant]
  3. EVOREL [Concomitant]
  4. FLUOXETINE [Concomitant]

REACTIONS (1)
  - ANAPHYLACTIC REACTION [None]
